FAERS Safety Report 6644350-7 (Version None)
Quarter: 2010Q1

REPORT INFORMATION
  Report Type: 
  Country: None (occurrence: None)
  Receive Date: 20100322
  Receipt Date: 20100316
  Transmission Date: 20100710
  Serious: Yes (Hospitalization)
  Sender: FDA-Public Use
  Company Number: US-MYLANLABS-2010S1002912

PATIENT
  Age: 15 Year
  Sex: Male
  Weight: 56.7 kg

DRUGS (4)
  1. AMNESTEEM [Suspect]
     Indication: ACNE CYSTIC
     Route: 048
     Dates: start: 20091001
  2. AMNESTEEM [Suspect]
     Route: 048
     Dates: end: 20091201
  3. AMNESTEEM [Suspect]
     Route: 048
     Dates: end: 20100203
  4. CLARAVIS [Suspect]
     Indication: ACNE CYSTIC
     Route: 048

REACTIONS (5)
  - ACNE FULMINANS [None]
  - DRUG INEFFECTIVE [None]
  - NIGHT SWEATS [None]
  - PAIN OF SKIN [None]
  - WHITE BLOOD CELL COUNT INCREASED [None]
